FAERS Safety Report 12463455 (Version 6)
Quarter: 2016Q3

REPORT INFORMATION
  Report Type: Spontaneous
  Country: CA (occurrence: CA)
  Receive Date: 20160614
  Receipt Date: 20160725
  Transmission Date: 20161109
  Serious: Yes (Other)
  Sender: FDA-Public Use
  Company Number: CA-009507513-1601CAN002015

PATIENT
  Sex: Male

DRUGS (4)
  1. ONCOTICE [Suspect]
     Active Substance: BACILLUS CALMETTE-GUERIN SUBSTRAIN TICE LIVE ANTIGEN
     Dosage: 1 TO 8 X 10^8 CFU, WEEKLY
     Route: 043
     Dates: start: 20151112, end: 20151203
  2. ONCOTICE [Suspect]
     Active Substance: BACILLUS CALMETTE-GUERIN SUBSTRAIN TICE LIVE ANTIGEN
     Indication: BLADDER CANCER
     Dosage: 1 TO 8 X 10^8 CFU, WEEKLY
     Route: 043
     Dates: start: 20151112, end: 20151203
  3. ONCOTICE [Suspect]
     Active Substance: BACILLUS CALMETTE-GUERIN SUBSTRAIN TICE LIVE ANTIGEN
     Dosage: 1 TO 8 X 10^8 CFU, WEEKLY
     Route: 043
     Dates: start: 20151112, end: 20151203
  4. ONCOTICE [Suspect]
     Active Substance: BACILLUS CALMETTE-GUERIN SUBSTRAIN TICE LIVE ANTIGEN
     Dosage: UNK, QW
     Route: 043
     Dates: start: 201402, end: 201404

REACTIONS (5)
  - Bacterial sepsis [Recovered/Resolved]
  - Toxicity to various agents [Recovered/Resolved]
  - Pruritus [Recovered/Resolved]
  - Pyrexia [Recovered/Resolved]
  - Arthralgia [Unknown]

NARRATIVE: CASE EVENT DATE: 2014
